FAERS Safety Report 8238989-5 (Version None)
Quarter: 2012Q1

REPORT INFORMATION
  Report Type: 
  Country: None (occurrence: None)
  Receive Date: 20120327
  Receipt Date: 20120315
  Transmission Date: 20120608
  Serious: Yes (Other)
  Sender: FDA-Public Use
  Company Number: JP-ASTRAZENECA-2012SE15863

PATIENT
  Age: 137 Day
  Sex: Male

DRUGS (5)
  1. MEROPENEM [Suspect]
     Indication: SEPSIS
     Route: 042
     Dates: start: 20110316, end: 20110321
  2. AMBISOME [Suspect]
     Indication: BLOOD BETA-D-GLUCAN ABNORMAL
     Route: 065
     Dates: start: 20110324, end: 20110329
  3. IMIPENEM AND CILASTATIN SODIUM [Suspect]
     Route: 065
     Dates: start: 20110711, end: 20110721
  4. LANSOPRAZOLE [Concomitant]
     Route: 065
     Dates: start: 20110622, end: 20110719
  5. IMIPENEM AND CILASTATIN SODIUM [Suspect]
     Indication: SEPSIS
     Route: 065
     Dates: start: 20110321, end: 20110321

REACTIONS (1)
  - LACTASE DEFICIENCY [None]
